FAERS Safety Report 17468858 (Version 1)
Quarter: 2020Q1

REPORT INFORMATION
  Report Type: Spontaneous
  Country: US (occurrence: US)
  Receive Date: 20200227
  Receipt Date: 20200227
  Transmission Date: 20200409
  Serious: Yes (Hospitalization)
  Sender: FDA-Public Use
  Company Number: None

PATIENT
  Sex: Female

DRUGS (4)
  1. XGEVA [Concomitant]
     Active Substance: DENOSUMAB
  2. AFINITOR [Suspect]
     Active Substance: EVEROLIMUS
     Indication: BREAST CANCER FEMALE
     Route: 048
     Dates: start: 20200116
  3. LIDOCAINE. [Concomitant]
     Active Substance: LIDOCAINE
  4. ZOLADEX [Concomitant]
     Active Substance: GOSERELIN ACETATE

REACTIONS (2)
  - Therapy cessation [None]
  - Influenza [None]
